FAERS Safety Report 7652959-7 (Version None)
Quarter: 2011Q3

REPORT INFORMATION
  Report Type: 
  Country: None (occurrence: None)
  Receive Date: 20110803
  Receipt Date: 20110721
  Transmission Date: 20111222
  Serious: Yes (Other)
  Sender: FDA-Public Use
  Company Number: US-ROCHE-735883

PATIENT
  Sex: Male

DRUGS (1)
  1. ACCUTANE [Suspect]
     Route: 065
     Dates: start: 19870101, end: 19881231

REACTIONS (6)
  - NAUSEA [None]
  - ABDOMINAL PAIN [None]
  - SUICIDAL IDEATION [None]
  - COLITIS ULCERATIVE [None]
  - RECTAL HAEMORRHAGE [None]
  - DEPRESSION [None]
